FAERS Safety Report 4452785-6 (Version None)
Quarter: 2004Q3

REPORT INFORMATION
  Report Type: 
  Country: None (occurrence: None)
  Receive Date: 20040916
  Receipt Date: 20040903
  Transmission Date: 20050211
  Serious: Yes (Hospitalization, Other)
  Sender: FDA-Public Use
  Company Number: 2004056329

PATIENT
  Age: 34 Year
  Sex: Male
  Weight: 70 kg

DRUGS (12)
  1. ZITHROMAX [Suspect]
     Indication: BRONCHITIS
     Dosage: 500 MG (500 MG, 1 IN 1 D), ORAL
     Route: 048
     Dates: start: 20040810, end: 20040812
  2. ZITHROMAX [Suspect]
     Indication: UPPER RESPIRATORY TRACT INFLAMMATION
     Dosage: 500 MG (500 MG, 1 IN 1 D), ORAL
     Route: 048
     Dates: start: 20040810, end: 20040812
  3. DICLOFENAC SODIUM [Suspect]
     Indication: ILL-DEFINED DISORDER
     Dosage: SEE IMAGE
     Route: 048
     Dates: start: 20040810, end: 20040812
  4. DICLOFENAC SODIUM [Suspect]
     Indication: PYREXIA
     Dosage: SEE IMAGE
     Route: 048
     Dates: start: 20040810, end: 20040812
  5. DICLOFENAC SODIUM [Concomitant]
  6. PL GRAN. (CAFFEINE, PARACETAMOL, PROMETHAZINE METHYLENE DISALICYLATE, [Concomitant]
  7. TRANEXAMIC ACID (TRANEXAMIC ACID) [Concomitant]
  8. SERRAPEPTASE (SERRAPEPTASE) [Concomitant]
  9. REBAMIPIDE (REBAMIPIDE) [Concomitant]
  10. POVIDONE IODINE [Concomitant]
  11. SOLITA-T 3G (CARBOHYDRATES NOS, POTASSIUM CHLORIDE, SODIUM CHLORIDE, S [Concomitant]
  12. B-KOMPLEX ^LECIVA^ (CALICUM PANTOTHENATE, NICOTINAMIDE, PYRIDOXINE HYD [Concomitant]

REACTIONS (4)
  - DRUG HYPERSENSITIVITY [None]
  - ERYTHEMA MULTIFORME [None]
  - UVEITIS [None]
  - VIRAL INFECTION [None]
